FAERS Safety Report 9258489 (Version 1)
Quarter: 2013Q2

REPORT INFORMATION
  Report Type: Spontaneous
  Country: US (occurrence: US)
  Receive Date: 20130426
  Receipt Date: 20130426
  Transmission Date: 20140414
  Serious: No
  Sender: FDA-Public Use
  Company Number: US-PFIZER INC-2013130668

PATIENT
  Age: 54 Year
  Sex: Male
  Weight: 135 kg

DRUGS (20)
  1. CHANTIX [Suspect]
     Indication: SMOKING CESSATION THERAPY
     Dosage: 0.5 MG, 1X/DAY
     Route: 048
  2. CHANTIX [Suspect]
     Dosage: 0.5 MG, 1X/DAY
     Route: 048
  3. CHANTIX [Suspect]
     Dosage: UNK
     Route: 048
  4. MS CONTIN [Concomitant]
     Dosage: 30 MG, 3X/DAY
  5. PERCOCET [Concomitant]
     Dosage: UNK, 4X/DAY
  6. GABAPENTIN [Concomitant]
     Dosage: 600 MG, 4X/DAY
  7. LIDODERM [Concomitant]
     Dosage: 5% CREAM, AS NEEDED
  8. LANOXIN [Concomitant]
     Dosage: 0.25 MG, 1X/DAY
  9. TENORMIN [Concomitant]
     Dosage: 50 MG, 1X/DAY
  10. COUMADIN [Concomitant]
     Dosage: 7.5 MG, 1X/DAY
  11. LISINOPRIL [Concomitant]
     Dosage: UNK, 2X/DAY
  12. PRAVASTATIN [Concomitant]
     Dosage: 40 MG, 1X/DAY
  13. METFORMIN [Concomitant]
     Indication: DIABETES MELLITUS
     Dosage: 850 MG, 2X/DAY
  14. CYMBALTA [Concomitant]
     Dosage: 60 MG, 1X/DAY
  15. TIZANIDINE [Concomitant]
     Dosage: 4 MG, 1X/DAY
  16. TAMSULOSIN [Concomitant]
     Dosage: 0.4 MG, UNK
  17. AMBIEN [Concomitant]
     Indication: INSOMNIA
     Dosage: 10 MG, AS NEEDED
  18. ANTABUSE [Concomitant]
     Dosage: 250 MG, UNK
  19. CIALIS [Concomitant]
     Dosage: UNK, AS NEEDED
  20. VIAGRA [Concomitant]
     Dosage: UNK, AS NEEDED

REACTIONS (1)
  - Drug ineffective [Unknown]
